FAERS Safety Report 10892480 (Version 2)
Quarter: 2015Q2

REPORT INFORMATION
  Report Type: Spontaneous
  Country: US (occurrence: US)
  Receive Date: 20150306
  Receipt Date: 20150428
  Transmission Date: 20150821
  Serious: No
  Sender: FDA-Public Use
  Company Number: US-TEVA-541996USA

PATIENT
  Age: 21 Year
  Sex: Female

DRUGS (4)
  1. LEVOTHYROXINE [Concomitant]
     Active Substance: LEVOTHYROXINE
  2. LOESTRIN NOS [Concomitant]
     Active Substance: ETHINYL ESTRADIOL\NORETHINDRONE ACETATE
     Indication: CONTRACEPTION
  3. ADDERALL [Concomitant]
     Active Substance: AMPHETAMINE ASPARTATE\AMPHETAMINE SULFATE\DEXTROAMPHETAMINE SACCHARATE\DEXTROAMPHETAMINE SULFATE
  4. CLARAVIS [Suspect]
     Active Substance: ISOTRETINOIN
     Indication: ACNE
     Dosage: 40 MILLIGRAM DAILY;
     Route: 048
     Dates: start: 20150205, end: 20150210

REACTIONS (6)
  - Fatigue [Recovered/Resolved]
  - Erythema [Recovered/Resolved]
  - Dysphagia [Recovered/Resolved]
  - Throat tightness [Recovered/Resolved]
  - Headache [Recovered/Resolved]
  - Eye irritation [Recovered/Resolved]

NARRATIVE: CASE EVENT DATE: 201502
